FAERS Safety Report 5875880-3 (Version None)
Quarter: 2008Q3

REPORT INFORMATION
  Report Type: 
  Country: None (occurrence: None)
  Receive Date: 20080905
  Receipt Date: 20071008
  Transmission Date: 20090109
  Serious: Yes (Hospitalization, Disabling)
  Sender: FDA-Public Use
  Company Number: 2008S1011666

PATIENT
  Age: 68 Year
  Sex: Male

DRUGS (15)
  1. AMLODIPINE [Suspect]
     Indication: DRUG USE FOR UNKNOWN INDICATION
  2. AVANDIA [Suspect]
     Indication: TYPE 2 DIABETES MELLITUS
     Dosage: 4 MG; TWICE A DAY; ORAL
     Route: 048
  3. AMITRIPTYLINE HCL [Concomitant]
  4. ASPIRIN [Concomitant]
  5. CANDESARTAN [Concomitant]
  6. CLOPIDOGREL [Concomitant]
  7. FLUOXETINE [Concomitant]
  8. FRUSEMIDE [Concomitant]
  9. ISMN [Concomitant]
  10. METFORMIN [Concomitant]
  11. NAPROXEN [Concomitant]
  12. OMEPRAZOLE [Concomitant]
  13. SIMVASTATIN [Concomitant]
  14. ZOPICLONE [Concomitant]
  15. BISOPROLOL FUMARATE [Concomitant]

REACTIONS (12)
  - ANGINA PECTORIS [None]
  - BRAIN NATRIURETIC PEPTIDE INCREASED [None]
  - CARDIAC FAILURE [None]
  - CORONARY ARTERY DISEASE [None]
  - DYSPNOEA [None]
  - DYSPNOEA EXERTIONAL [None]
  - FLUID RETENTION [None]
  - HYPERHIDROSIS [None]
  - NECK PAIN [None]
  - OEDEMA PERIPHERAL [None]
  - PAIN [None]
  - PAIN IN EXTREMITY [None]
